FAERS Safety Report 6446988-9 (Version None)
Quarter: 2009Q4

REPORT INFORMATION
  Report Type: 
  Country: None (occurrence: None)
  Receive Date: 20091119
  Receipt Date: 20091110
  Transmission Date: 20100525
  Serious: Yes (Other)
  Sender: FDA-Public Use
  Company Number: DE-PFIZER INC-2009295855

PATIENT
  Age: 79 Year
  Sex: Female
  Weight: 70 kg

DRUGS (2)
  1. XALATAN [Suspect]
     Indication: GLAUCOMA
     Dosage: UNK
     Route: 061
     Dates: start: 20090505, end: 20091001
  2. LYRICA [Concomitant]
     Indication: HERPES ZOSTER
     Dosage: 2-3X DAILY
     Dates: start: 20080101

REACTIONS (3)
  - ANGINA PECTORIS [None]
  - PALPITATIONS [None]
  - TACHYCARDIA [None]
